FAERS Safety Report 7251034-3 (Version None)
Quarter: 2011Q1

REPORT INFORMATION
  Report Type: 
  Country: None (occurrence: None)
  Receive Date: 20110128
  Receipt Date: 20110126
  Transmission Date: 20110831
  Serious: Yes (Hospitalization)
  Sender: FDA-Public Use
  Company Number: A0593263A

PATIENT
  Age: 44 Year
  Sex: Female

DRUGS (5)
  1. LAMICTAL [Suspect]
     Indication: BIPOLAR DISORDER
     Route: 048
     Dates: start: 20051101, end: 20060101
  2. KLONOPIN [Concomitant]
  3. VALTREX [Concomitant]
  4. PROZAC [Concomitant]
  5. XANAX [Concomitant]

REACTIONS (3)
  - EMOTIONAL DISTRESS [None]
  - SUICIDAL IDEATION [None]
  - HOMICIDAL IDEATION [None]
